FAERS Safety Report 16989100 (Version 1)
Quarter: 2019Q4

REPORT INFORMATION
  Report Type: Spontaneous
  Country: US (occurrence: US)
  Receive Date: 20190919
  Receipt Date: 20190919
  Transmission Date: 20200122
  Serious: No
  Sender: FDA-Public Use
  Company Number: None

PATIENT
  Age: 73 Year
  Sex: Female

DRUGS (2)
  1. CBD SUPPLEMENT [Concomitant]
  2. IBRANCE [Suspect]
     Active Substance: PALBOCICLIB
     Indication: BREAST CANCER
     Route: 048
     Dates: start: 201901

REACTIONS (3)
  - Headache [None]
  - Skull X-ray abnormal [None]
  - Neoplasm malignant [None]

NARRATIVE: CASE EVENT DATE: 20190912
